FAERS Safety Report 8385761-1 (Version None)
Quarter: 2012Q2

REPORT INFORMATION
  Report Type: 
  Country: None (occurrence: None)
  Receive Date: 20120523
  Receipt Date: 20120523
  Transmission Date: 20120825
  Serious: Yes (Hospitalization)
  Sender: FDA-Public Use
  Company Number: None

PATIENT
  Age: 64 Year
  Sex: Male
  Weight: 69.6 kg

DRUGS (1)
  1. GLIPIZIDE [Suspect]
     Indication: DIABETES MELLITUS
     Dosage: 10 MG AM PO
     Route: 048
     Dates: start: 20080206, end: 20120402

REACTIONS (7)
  - FEELING ABNORMAL [None]
  - CONFUSIONAL STATE [None]
  - HYPOGLYCAEMIA [None]
  - DRUG DOSE OMISSION [None]
  - UNRESPONSIVE TO STIMULI [None]
  - DRUG CLEARANCE DECREASED [None]
  - DECREASED APPETITE [None]
